FAERS Safety Report 10898890 (Version 2)
Quarter: 2015Q2

REPORT INFORMATION
  Report Type: Spontaneous
  Country: US (occurrence: US)
  Receive Date: 20150309
  Receipt Date: 20150427
  Transmission Date: 20150821
  Serious: Yes (Other)
  Sender: FDA-Public Use
  Company Number: US-APOTEX-2015AP007194

PATIENT
  Sex: Male

DRUGS (2)
  1. BUPROPION HYDROCHLORIDE. [Suspect]
     Active Substance: BUPROPION HYDROCHLORIDE
     Indication: DISTURBANCE IN ATTENTION
     Dosage: 75 MG, SINGLE
     Route: 065
     Dates: start: 20090926, end: 20090926
  2. BUPROPION HYDROCHLORIDE. [Suspect]
     Active Substance: BUPROPION HYDROCHLORIDE
     Indication: FATIGUE

REACTIONS (8)
  - Hallucinations, mixed [Unknown]
  - Nausea [Unknown]
  - Neck pain [Unknown]
  - Seizure [Unknown]
  - Off label use [Unknown]
  - Vomiting [Unknown]
  - Product quality issue [Unknown]
  - Dysphagia [Unknown]

NARRATIVE: CASE EVENT DATE: 20090926
